FAERS Safety Report 21432511 (Version 2)
Quarter: 2022Q4

REPORT INFORMATION
  Report Type: Report from Study
  Country: BE (occurrence: BE)
  Receive Date: 20221010
  Receipt Date: 20221017
  Transmission Date: 20230112
  Serious: Yes (Hospitalization, Other)
  Sender: FDA-Public Use
  Company Number: BE-ABBVIE-4144338

PATIENT
  Sex: Female
  Weight: 60 kg

DRUGS (8)
  1. CARBIDOPA\LEVODOPA [Suspect]
     Active Substance: CARBIDOPA\LEVODOPA
     Indication: Parkinson^s disease
     Route: 050
     Dates: start: 20191125
  2. CARBIDOPA\LEVODOPA [Suspect]
     Active Substance: CARBIDOPA\LEVODOPA
     Dosage: MD: 5.0 ML, CD: 3.1 ML/H, ED: 3.0 ML; REMAINS AT 16 HOURS
     Route: 050
     Dates: start: 20221006
  3. CARBIDOPA\LEVODOPA [Suspect]
     Active Substance: CARBIDOPA\LEVODOPA
     Dosage: MD: 5.0 ML, CD: 3.1 ML/H, ED: 3.0 ML; REMAINS AT 16 HOURS
     Route: 050
     Dates: start: 20220613, end: 20221006
  4. BENSERAZIDE\LEVODOPA [Concomitant]
     Active Substance: BENSERAZIDE\LEVODOPA
     Indication: Product used for unknown indication
     Dosage: 8 TIMES A DAY EVERY 2 HOURS; STRENGTH 250 UNKNOWN UNIT
  5. PAROXETINE [Concomitant]
     Active Substance: PAROXETINE
     Indication: Product used for unknown indication
     Dosage: FORM STRENGTH 50 WITH UNKNOWN UNIT
  6. NORTRIPTYLINE [Concomitant]
     Active Substance: NORTRIPTYLINE
     Indication: Product used for unknown indication
     Dosage: FORM STRENGTH 25 MG; IN THE EVENING
  7. XANAX [Concomitant]
     Active Substance: ALPRAZOLAM
     Indication: Product used for unknown indication
     Dosage: FORM STRENGTH: 0.5 MG
  8. SEROQUEL [Concomitant]
     Active Substance: QUETIAPINE FUMARATE
     Indication: Product used for unknown indication
     Dosage: 8 TIMES A DAY EVERY 2 HOURS; STRENGTH 250 UNKNOWN UNIT

REACTIONS (2)
  - Hip fracture [Recovering/Resolving]
  - Fall [Recovered/Resolved]

NARRATIVE: CASE EVENT DATE: 20220101
